FAERS Safety Report 9297341 (Version 1)
Quarter: 2013Q2

REPORT INFORMATION
  Report Type: Spontaneous
  Country: US (occurrence: None)
  Receive Date: 20130517
  Receipt Date: 20130517
  Transmission Date: 20140414
  Serious: Yes (Death)
  Sender: FDA-Public Use
  Company Number: None

PATIENT
  Age: 80 Year
  Sex: Male

DRUGS (22)
  1. XTANDI 40MG CAPSULE ASTELLAS [Suspect]
     Indication: PROSTATE CANCER
     Dosage: 4 CAPS
     Route: 048
     Dates: start: 20121025, end: 20121115
  2. ATROPINE SULF. OPH SOLN [Concomitant]
  3. HALOPERIDOL [Concomitant]
  4. CIPROFLOXACIN [Concomitant]
  5. FLUCONAZOLE [Concomitant]
  6. NYSTATIN ORAL SUSP. [Concomitant]
  7. LIDOCAINE GEL [Concomitant]
  8. DEXAMETHASONE [Concomitant]
  9. FUROSEMIDE [Concomitant]
  10. LORAZEPAM [Concomitant]
  11. ATORVASTATIN [Concomitant]
  12. BISACODYL SUPP. [Concomitant]
  13. LYRICA [Concomitant]
  14. METFORMIN [Concomitant]
  15. APIDRA [Concomitant]
  16. CYMBALTA [Concomitant]
  17. TAMSULOSIN [Concomitant]
  18. AVODART [Concomitant]
  19. SPIRONOLACTONE [Concomitant]
  20. LOSARTAN [Concomitant]
  21. LANTUS SOLOSTAR PEN [Concomitant]
  22. FREESTYLE BG TEST STRIPS [Concomitant]

REACTIONS (1)
  - Death [None]
